FAERS Safety Report 19682741 (Version 2)
Quarter: 2021Q3

REPORT INFORMATION
  Report Type: Spontaneous
  Country: JP (occurrence: JP)
  Receive Date: 20210810
  Receipt Date: 20210901
  Transmission Date: 20211014
  Serious: No
  Sender: FDA-Public Use
  Company Number: JP-BAUSCH-BL-2021-027112

PATIENT
  Age: 88 Year
  Sex: Female

DRUGS (7)
  1. OFLOXACIN. [Concomitant]
     Active Substance: OFLOXACIN
     Dosage: EYEWASH OINTMENT
     Route: 031
     Dates: start: 202007
  2. BRONUCK OPHTHALMIC SOLUTION 0.1% [Suspect]
     Active Substance: BROMFENAC SODIUM
     Indication: POSTOPERATIVE CARE
     Dosage: BID, AS THIS CASE WAS A LITERATURE REPORT, INFORMATION ON BRONUCK WAS UNKNOWN
     Route: 047
     Dates: start: 202007
  3. BRONUCK OPHTHALMIC SOLUTION 0.1% [Suspect]
     Active Substance: BROMFENAC SODIUM
     Route: 047
  4. OFLOXACIN. [Concomitant]
     Active Substance: OFLOXACIN
     Indication: POSTOPERATIVE CARE
     Dosage: EYEWASH OINTMENT
     Route: 031
     Dates: start: 202007, end: 202007
  5. CRAVIT [Concomitant]
     Active Substance: LEVOFLOXACIN
     Dosage: SEVEN TIMES PER DAY
     Route: 047
  6. RINDERON (BETAMETHASONE SODIUM PHOSPHATE) [Suspect]
     Active Substance: BETAMETHASONE SODIUM PHOSPHATE
     Indication: POSTOPERATIVE CARE
     Route: 047
  7. CRAVIT [Concomitant]
     Active Substance: LEVOFLOXACIN
     Indication: POSTOPERATIVE CARE
     Route: 047
     Dates: start: 202007, end: 202007

REACTIONS (1)
  - Corneal opacity [Recovered/Resolved]

NARRATIVE: CASE EVENT DATE: 202007
